FAERS Safety Report 5251336-6 (Version None)
Quarter: 2007Q1

REPORT INFORMATION
  Report Type: 
  Country: None (occurrence: None)
  Receive Date: 20070228
  Receipt Date: 20070213
  Transmission Date: 20070707
  Serious: Yes (Hospitalization, Other)
  Sender: FDA-Public Use
  Company Number: US-ELI_LILLY_AND_COMPANY-US200702002733

PATIENT
  Sex: Female

DRUGS (2)
  1. HUMALOG [Suspect]
     Indication: DIABETES MELLITUS NON-INSULIN-DEPENDENT
  2. HUMALOG [Suspect]
     Dates: start: 20060101

REACTIONS (22)
  - BLOOD GLUCOSE DECREASED [None]
  - BLOOD GLUCOSE INCREASED [None]
  - BLOOD PRESSURE INCREASED [None]
  - CARDIAC DISORDER [None]
  - CONSTIPATION [None]
  - COUGH [None]
  - DENTAL TREATMENT [None]
  - DEPRESSION [None]
  - DIARRHOEA [None]
  - DYSPNOEA [None]
  - FLUID RETENTION [None]
  - HYPERHIDROSIS [None]
  - HYPERKERATOSIS [None]
  - HYPOTHERMIA [None]
  - INCONTINENCE [None]
  - LOSS OF CONSCIOUSNESS [None]
  - MEMORY IMPAIRMENT [None]
  - ORAL PAIN [None]
  - OSTEOPOROSIS [None]
  - PULMONARY OEDEMA [None]
  - SWELLING [None]
  - VISUAL FIELD DEFECT [None]
